FAERS Safety Report 7574962-8 (Version None)
Quarter: 2011Q2

REPORT INFORMATION
  Report Type: 
  Country: None (occurrence: None)
  Receive Date: 20110627
  Receipt Date: 20110614
  Transmission Date: 20111010
  Serious: Yes (Death)
  Sender: FDA-Public Use
  Company Number: DE-BAYER-200819576GPV

PATIENT
  Age: 75 Year
  Sex: Male
  Weight: 80 kg

DRUGS (11)
  1. SORAFENIB (RAF KINASE INHIBITOR) [Suspect]
     Indication: RENAL CELL CARCINOMA
     Route: 048
     Dates: start: 20070328, end: 20080530
  2. ENABETA [Concomitant]
     Indication: HYPERTENSION
     Dosage: 5 MG (DAILY DOSE), QD, ORAL
     Route: 048
     Dates: start: 19990101, end: 20070510
  3. GLUCOPHAGE [Concomitant]
     Indication: TYPE 2 DIABETES MELLITUS
     Route: 048
     Dates: start: 19990101, end: 20080530
  4. CIPRO BASICS [Concomitant]
     Indication: INFLUENZA LIKE ILLNESS
     Dosage: 500 MG (DAILY DOSE), QD, UNKNOWN
     Route: 065
     Dates: start: 20070516, end: 20070526
  5. CLOTRIMAZOLE [Concomitant]
     Indication: PRURITUS
  6. AMARYL [Concomitant]
     Indication: TYPE 2 DIABETES MELLITUS
     Dosage: 3 MG (DAILY DOSE), QD, UNKNOWN
     Route: 065
     Dates: start: 19990101, end: 20060621
  7. GLIMEPIRIDE [Concomitant]
     Indication: TYPE 2 DIABETES MELLITUS
     Dosage: 4 MG (DAILY DOSE), QD, ORAL
     Route: 048
     Dates: start: 20060621, end: 20070515
  8. CLOTRIMAZOLE [Concomitant]
     Indication: FUNGAL INFECTION
     Route: 065
     Dates: start: 20080227, end: 20080423
  9. ENABETA [Concomitant]
     Dosage: DAILY DOSE 15 MG
     Route: 048
     Dates: start: 20070516, end: 20080530
  10. GLIMEPIRIDE [Concomitant]
     Dosage: 6 MG (DAILY DOSE), QD, ORAL
     Route: 048
     Dates: start: 20070516, end: 20080530
  11. METOCLOPRAMIDE HYDROCHLORIDE [Concomitant]
     Indication: PRODUCT USED FOR UNKNOWN INDICATION
     Route: 065
     Dates: start: 20080227, end: 20080423

REACTIONS (1)
  - SUDDEN DEATH [None]
